FAERS Safety Report 10156830 (Version 4)
Quarter: 2014Q3

REPORT INFORMATION
  Report Type: Spontaneous
  Country: FR (occurrence: FR)
  Receive Date: 20140507
  Receipt Date: 20140804
  Transmission Date: 20150326
  Serious: Yes (Death, Other)
  Sender: FDA-Public Use
  Company Number: FR-ASTELLAS-2014EU004300

PATIENT
  Age: 63 Year
  Sex: Male

DRUGS (7)
  1. XGEVA [Concomitant]
     Active Substance: DENOSUMAB
     Indication: PROSTATE CANCER
     Dosage: UNK UNK, MONTHLY
     Route: 058
     Dates: start: 20131014
  2. SOLUPRED                           /00016201/ [Concomitant]
     Active Substance: PREDNISOLONE
     Indication: PROSTATE CANCER
     Route: 048
     Dates: start: 20140321
  3. JEVTANA [Interacting]
     Active Substance: CABAZITAXEL
     Indication: PROSTATE CANCER
     Route: 042
  4. TAXOTERE [Concomitant]
     Active Substance: DOCETAXEL
     Indication: PROSTATE CANCER
     Dosage: UNK UNK, UNKNOWN FREQ.
     Route: 065
     Dates: end: 201403
  5. ZOLADEX [Concomitant]
     Active Substance: GOSERELIN ACETATE
     Indication: PROSTATE CANCER
     Dosage: 10.8 MG, EVERY 3 MONTHS
     Route: 058
     Dates: start: 20130413
  6. TRILEPTAL [Concomitant]
     Active Substance: OXCARBAZEPINE
     Indication: TRIGEMINAL NEURALGIA
     Route: 048
     Dates: start: 20140226
  7. XTANDI [Suspect]
     Active Substance: ENZALUTAMIDE
     Indication: PROSTATE CANCER
     Dosage: 4 X 40 MG, ONCE DAILY
     Route: 048
     Dates: start: 20131206, end: 20140410

REACTIONS (7)
  - Prostate cancer [Fatal]
  - Off label use [Unknown]
  - Ligament sprain [Recovering/Resolving]
  - Fall [Recovered/Resolved]
  - Drug interaction [Unknown]
  - Fatigue [Fatal]
  - Balance disorder [Recovered/Resolved]

NARRATIVE: CASE EVENT DATE: 201401
